FAERS Safety Report 13250077 (Version 1)
Quarter: 2017Q1

REPORT INFORMATION
  Report Type: Spontaneous
  Country: US (occurrence: US)
  Receive Date: 20170218
  Receipt Date: 20170218
  Transmission Date: 20170428
  Serious: No
  Sender: FDA-Public Use
  Company Number: US-ALLERGAN-1666650US

PATIENT
  Sex: Female

DRUGS (1)
  1. RESTASIS [Suspect]
     Active Substance: CYCLOSPORINE
     Indication: PRODUCT USED FOR UNKNOWN INDICATION
     Dosage: UNK
     Route: 047

REACTIONS (11)
  - Expired product administered [Unknown]
  - Wrong technique in product usage process [Unknown]
  - Cataract [Recovering/Resolving]
  - Incorrect dose administered [Unknown]
  - Incorrect product storage [Unknown]
  - Eye discharge [Unknown]
  - Glare [Recovering/Resolving]
  - Eye disorder [Unknown]
  - Lacrimation increased [Recovering/Resolving]
  - Inappropriate schedule of drug administration [Unknown]
  - Drug ineffective [Unknown]
